FAERS Safety Report 21457357 (Version 1)
Quarter: 2022Q4

REPORT INFORMATION
  Report Type: Spontaneous
  Country: US (occurrence: US)
  Receive Date: 20221014
  Receipt Date: 20221014
  Transmission Date: 20230113
  Serious: Yes (Other)
  Sender: FDA-Public Use
  Company Number: US-MLMSERVICE-20220927-3818567-1

PATIENT
  Age: 37 Year
  Sex: Female

DRUGS (6)
  1. CISPLATIN [Suspect]
     Active Substance: CISPLATIN
     Indication: Lung neoplasm malignant
  2. ETOPOSIDE [Suspect]
     Active Substance: ETOPOSIDE
     Indication: Lung neoplasm malignant
  3. BLEOMYCIN [Suspect]
     Active Substance: BLEOMYCIN SULFATE
     Indication: Lung neoplasm malignant
  4. BLEOMYCIN [Suspect]
     Active Substance: BLEOMYCIN SULFATE
     Indication: Choriocarcinoma
  5. ETOPOSIDE [Suspect]
     Active Substance: ETOPOSIDE
     Indication: Choriocarcinoma
  6. CISPLATIN [Suspect]
     Active Substance: CISPLATIN
     Indication: Choriocarcinoma

REACTIONS (7)
  - Pancytopenia [Unknown]
  - Raynaud^s phenomenon [Unknown]
  - Alopecia [Unknown]
  - Fatigue [Unknown]
  - Drug eruption [Unknown]
  - Candida infection [Unknown]
  - Off label use [Unknown]
